FAERS Safety Report 17444104 (Version 1)
Quarter: 2020Q1

REPORT INFORMATION
  Report Type: Report from Study
  Country: US (occurrence: US)
  Receive Date: 20200221
  Receipt Date: 20200221
  Transmission Date: 20200409
  Serious: No
  Sender: FDA-Public Use
  Company Number: NVSC2020US048320

PATIENT
  Sex: Female

DRUGS (1)
  1. PIQRAY [Suspect]
     Active Substance: ALPELISIB
     Indication: PRODUCT USED FOR UNKNOWN INDICATION
     Dosage: UNK
     Route: 048

REACTIONS (7)
  - Diarrhoea [Unknown]
  - Pruritus [Unknown]
  - Weight decreased [Unknown]
  - Rash [Unknown]
  - Ageusia [Unknown]
  - Fatigue [Unknown]
  - Product dose omission [Unknown]
